FAERS Safety Report 5044791-8 (Version None)
Quarter: 2006Q3

REPORT INFORMATION
  Report Type: 
  Country: None (occurrence: None)
  Receive Date: 20060707
  Receipt Date: 20060614
  Transmission Date: 20061208
  Serious: Yes (Other)
  Sender: FDA-Public Use
  Company Number: 2006GB01012

PATIENT
  Age: 679 Month
  Sex: Male

DRUGS (1)
  1. FELODIPINE [Suspect]
     Indication: HYPERTENSION
     Route: 048
     Dates: start: 20010101, end: 20060501

REACTIONS (1)
  - CUTANEOUS VASCULITIS [None]
